FAERS Safety Report 7200444-9 (Version None)
Quarter: 2010Q4

REPORT INFORMATION
  Report Type: 
  Country: None (occurrence: None)
  Receive Date: 20101228
  Receipt Date: 20101221
  Transmission Date: 20110411
  Serious: Yes (Disabling)
  Sender: FDA-Public Use
  Company Number: CA-MERCK-1012USA03522

PATIENT
  Age: 36 Month
  Sex: Male
  Weight: 11 kg

DRUGS (1)
  1. SINGULAIR [Suspect]
     Route: 048

REACTIONS (6)
  - AGGRESSION [None]
  - FEAR [None]
  - HALLUCINATION [None]
  - INSOMNIA [None]
  - NIGHTMARE [None]
  - PERSONALITY CHANGE [None]
